FAERS Safety Report 9588417 (Version 1)
Quarter: 2013Q4

REPORT INFORMATION
  Report Type: Spontaneous
  Country: US (occurrence: US)
  Receive Date: 20131003
  Receipt Date: 20131003
  Transmission Date: 20140711
  Serious: No
  Sender: FDA-Public Use
  Company Number: US-AMGEN-USASP2012064004

PATIENT
  Age: 40 Year
  Sex: Female
  Weight: 105.67 kg

DRUGS (6)
  1. ENBREL [Suspect]
     Indication: PRODUCT USED FOR UNKNOWN INDICATION
     Dosage: 50 MG, QWK
     Route: 058
     Dates: start: 2007
  2. SKELAXIN                           /00611501/ [Concomitant]
     Dosage: 800 MG, UNK
  3. LISINOPRIL [Concomitant]
     Dosage: 30 MG, UNK
  4. MAXZIDE [Concomitant]
     Dosage: 75-50
  5. METFORMIN [Concomitant]
     Dosage: 500 MG, UNK
  6. CARVEDILOL [Concomitant]
     Dosage: 12.5 MG, UNK

REACTIONS (3)
  - Fatigue [Unknown]
  - Pain [Unknown]
  - Vulvovaginal mycotic infection [Unknown]
